FAERS Safety Report 19932792 (Version 1)
Quarter: 2021Q4

REPORT INFORMATION
  Report Type: Spontaneous
  Country: US (occurrence: US)
  Receive Date: 20211006
  Receipt Date: 20211006
  Transmission Date: 20220303
  Serious: Yes (Hospitalization)
  Sender: FDA-Public Use
  Company Number: None

PATIENT
  Age: 55 Year
  Sex: Female

DRUGS (5)
  1. BOTOX [Suspect]
     Active Substance: ONABOTULINUMTOXINA
     Indication: Torticollis
     Dosage: ?          OTHER FREQUENCY:Q90D;OTHER ROUTE:HEAD + NECK REGION
     Dates: start: 20210714
  2. ESTRADIOL [Concomitant]
     Active Substance: ESTRADIOL
  3. LISINOPRIL [Concomitant]
     Active Substance: LISINOPRIL
  4. TIZANIDINE [Concomitant]
     Active Substance: TIZANIDINE
  5. TRAZODONE [Concomitant]
     Active Substance: TRAZODONE HYDROCHLORIDE

REACTIONS (1)
  - Paralysis [None]

NARRATIVE: CASE EVENT DATE: 20210723
